FAERS Safety Report 8611954-1 (Version None)
Quarter: 2012Q3

REPORT INFORMATION
  Report Type: 
  Country: None (occurrence: None)
  Receive Date: 20120822
  Receipt Date: 20120820
  Transmission Date: 20120928
  Serious: Yes (Other)
  Sender: FDA-Public Use
  Company Number: US-PFIZER INC-2012203784

PATIENT
  Age: 74 Year
  Sex: Female
  Weight: 90.703 kg

DRUGS (2)
  1. THYROID TAB [Concomitant]
     Indication: HYPOTHYROIDISM
     Dosage: 1 G, 1X/DAY
  2. VENLAFAXINE HCL [Suspect]
     Indication: NEUROPATHY PERIPHERAL
     Dosage: 75 MG, 1X/DAY
     Route: 048
     Dates: start: 20100101

REACTIONS (3)
  - VISUAL ACUITY REDUCED [None]
  - EYE OEDEMA [None]
  - EYE HAEMORRHAGE [None]
